FAERS Safety Report 7718346-8 (Version None)
Quarter: 2011Q3

REPORT INFORMATION
  Report Type: 
  Country: None (occurrence: None)
  Receive Date: 20110830
  Receipt Date: 20110823
  Transmission Date: 20111222
  Serious: Yes (Other)
  Sender: FDA-Public Use
  Company Number: PHEH2011US02303

PATIENT
  Age: 56 Year
  Sex: Female

DRUGS (4)
  1. SANDOSTATIN LAR [Suspect]
  2. SANDOSTATIN [Suspect]
  3. CHOLESTEROL MEDICINE [Concomitant]
  4. PAIN MEDICINE [Concomitant]

REACTIONS (4)
  - PANCREATITIS [None]
  - ABDOMINAL DISCOMFORT [None]
  - BLOOD URINE PRESENT [None]
  - HORMONE LEVEL ABNORMAL [None]
